FAERS Safety Report 23685339 (Version 1)
Quarter: 2024Q1

REPORT INFORMATION
  Report Type: Spontaneous
  Country: FR (occurrence: FR)
  Receive Date: 20240329
  Receipt Date: 20240329
  Transmission Date: 20240410
  Serious: Yes (Other)
  Sender: FDA-Public Use
  Company Number: FR-ViiV Healthcare Limited-FR2024GSK038238

PATIENT

DRUGS (4)
  1. CABOTEGRAVIR [Suspect]
     Active Substance: CABOTEGRAVIR
     Indication: HIV infection
     Dosage: UNK
     Route: 030
     Dates: start: 20220608
  2. CABOTEGRAVIR [Suspect]
     Active Substance: CABOTEGRAVIR
  3. CABOTEGRAVIR [Suspect]
     Active Substance: CABOTEGRAVIR
  4. RILPIVIRINE [Suspect]
     Active Substance: RILPIVIRINE
     Indication: HIV infection
     Dosage: UNK
     Route: 030
     Dates: start: 20220608

REACTIONS (4)
  - Superinfection [Unknown]
  - Virologic failure [Recovered/Resolved]
  - Viral mutation identified [Unknown]
  - Viraemia [Recovered/Resolved]
